FAERS Safety Report 5651748-2 (Version None)
Quarter: 2008Q1

REPORT INFORMATION
  Report Type: 
  Country: None (occurrence: None)
  Receive Date: 20080305
  Receipt Date: 20080223
  Transmission Date: 20080703
  Serious: Yes (Hospitalization, Other)
  Sender: FDA-Public Use
  Company Number: US-PFIZER INC-2008007220

PATIENT
  Sex: Female

DRUGS (4)
  1. FLAGYL [Suspect]
     Indication: BACTERIAL INFECTION
     Route: 048
     Dates: start: 20080119, end: 20080124
  2. FLONASE [Concomitant]
  3. NASAL SALINE [Concomitant]
  4. VITAMINS [Concomitant]

REACTIONS (16)
  - ABDOMINAL DISTENSION [None]
  - APHASIA [None]
  - BIPOLAR DISORDER [None]
  - CATATONIA [None]
  - CONFUSIONAL STATE [None]
  - DISORIENTATION [None]
  - DISTURBANCE IN ATTENTION [None]
  - DIZZINESS [None]
  - DRUG DOSE OMISSION [None]
  - EATING DISORDER [None]
  - FEELING ABNORMAL [None]
  - FLIGHT OF IDEAS [None]
  - MALAISE [None]
  - MIGRAINE [None]
  - MOVEMENT DISORDER [None]
  - PARTIAL SEIZURES [None]
